FAERS Safety Report 12826627 (Version 3)
Quarter: 2016Q4

REPORT INFORMATION
  Report Type: Report from Study
  Country: PH (occurrence: PH)
  Receive Date: 20161006
  Receipt Date: 20161020
  Transmission Date: 20170207
  Serious: Yes (Hospitalization, Other)
  Sender: FDA-Public Use
  Company Number: PH-B.I. PHARMACEUTICALS,INC./RIDGEFIELD-2016-BI-41599BI

PATIENT
  Age: 67 Year
  Sex: Female
  Weight: 35.5 kg

DRUGS (9)
  1. BLINDED TIOTROPIUM BROMIDE+OLODATEROL [Suspect]
     Active Substance: OLODATEROL HYDROCHLORIDE\TIOTROPIUM BROMIDE MONOHYDRATE
     Indication: CHRONIC OBSTRUCTIVE PULMONARY DISEASE
     Route: 055
     Dates: start: 20151005, end: 20160928
  2. GLIMEPERIDE [Concomitant]
     Active Substance: GLIMEPIRIDE
     Indication: TYPE 2 DIABETES MELLITUS
     Route: 048
     Dates: start: 201407
  3. ASPIRIN. [Concomitant]
     Active Substance: ASPIRIN
     Indication: CORONARY ARTERY DISEASE
     Route: 048
     Dates: start: 2001
  4. SALBUTAMOL [Concomitant]
     Active Substance: ALBUTEROL
     Indication: CHRONIC OBSTRUCTIVE PULMONARY DISEASE
     Route: 055
     Dates: start: 20150929
  5. SALBUTAMOL [Concomitant]
     Active Substance: ALBUTEROL
     Dosage: DAILY DOSE: 2 PUFF PRN
     Route: 055
     Dates: start: 20161005
  6. BUDECORT [Concomitant]
     Active Substance: BUDESONIDE
     Indication: CHRONIC OBSTRUCTIVE PULMONARY DISEASE
     Route: 055
     Dates: start: 20151005
  7. CEFAXONE [Concomitant]
     Active Substance: CEFTRIAXONE
     Indication: TRACHEOBRONCHITIS
     Route: 042
     Dates: start: 20160620, end: 20160626
  8. TELMISARTAN. [Concomitant]
     Active Substance: TELMISARTAN
     Indication: CARDIOVASCULAR DISORDER
     Route: 048
     Dates: start: 2001
  9. LANOXIN [Concomitant]
     Active Substance: DIGOXIN
     Indication: CARDIOVASCULAR DISORDER
     Route: 048
     Dates: start: 2001

REACTIONS (5)
  - Tracheobronchitis [Recovered/Resolved]
  - Cor pulmonale [Recovered/Resolved]
  - Diarrhoea [Recovered/Resolved]
  - Gastroenteritis [Recovered/Resolved]
  - Dehydration [Recovered/Resolved]

NARRATIVE: CASE EVENT DATE: 20160621
